FAERS Safety Report 17709215 (Version 1)
Quarter: 2020Q2

REPORT INFORMATION
  Report Type: Spontaneous
  Country: DE (occurrence: DE)
  Receive Date: 20200426
  Receipt Date: 20200426
  Transmission Date: 20200714
  Serious: Yes (Life-Threatening, Hospitalization, Other)
  Sender: FDA-Public Use
  Company Number: DE-AUROBINDO-AUR-APL-2020-020403

PATIENT
  Age: 16 Year
  Sex: Male

DRUGS (1)
  1. AMIODARONE [Suspect]
     Active Substance: AMIODARONE
     Indication: VENTRICULAR TACHYCARDIA
     Dosage: 450 MILLIGRAM
     Route: 065

REACTIONS (4)
  - Loss of consciousness [Recovering/Resolving]
  - Bradycardia [Recovered/Resolved]
  - Haemodynamic instability [Recovering/Resolving]
  - Ejection fraction decreased [Recovering/Resolving]
